FAERS Safety Report 4831555-0 (Version None)
Quarter: 2005Q4

REPORT INFORMATION
  Report Type: 
  Country: None (occurrence: None)
  Receive Date: 20051114
  Receipt Date: 20051007
  Transmission Date: 20060501
  Serious: Yes (Other)
  Sender: FDA-Public Use
  Company Number: 2005082531

PATIENT
  Sex: Female

DRUGS (4)
  1. NEURONTIN [Suspect]
     Indication: SCIATICA
     Dosage: 300 MG
     Dates: start: 20050517, end: 20050519
  2. REMIFEMIN (CIMICIFUGA RACEMOSA ROOT) [Concomitant]
  3. MOBILIS (PIROXICAM) [Concomitant]
  4. ZOCOR [Concomitant]

REACTIONS (3)
  - ABDOMINAL DISTENSION [None]
  - PARAESTHESIA ORAL [None]
  - SWOLLEN TONGUE [None]
